FAERS Safety Report 9242600 (Version 1)
Quarter: 2013Q2

REPORT INFORMATION
  Report Type: Spontaneous
  Country: US (occurrence: US)
  Receive Date: 20130419
  Receipt Date: 20130419
  Transmission Date: 20140414
  Serious: Yes (Hospitalization)
  Sender: FDA-Public Use
  Company Number: PHEH2013US008481

PATIENT
  Age: 59 Year
  Sex: Female

DRUGS (12)
  1. DIOVAN [Suspect]
     Dosage: 320 MG, QD
     Route: 048
  2. DIOVAN [Suspect]
     Dosage: 80 MG, UNK
  3. TRAMADOL [Concomitant]
     Dosage: 50 MG, UNK
  4. SIMVASTATIN [Concomitant]
     Dosage: 20 MG, UNK
  5. BABY ASPIRIN [Concomitant]
  6. PROMETHAZINE [Concomitant]
     Indication: ABDOMINAL DISCOMFORT
     Dosage: 25 MG, UNK
  7. OXYCODONE [Concomitant]
     Indication: PAIN
     Dosage: 5 MG, UNK
  8. IBUPROFEN [Concomitant]
     Dosage: 800 MG, UNK
  9. TRAZODONE [Concomitant]
     Dosage: 50 MG, UNK
  10. EFFIENT [Concomitant]
     Dosage: 10 MG, UNK
  11. AMARYL [Concomitant]
     Dosage: 4 MG, UNK
  12. INSULIN [Concomitant]

REACTIONS (2)
  - Myocardial infarction [Unknown]
  - Blood pressure abnormal [Unknown]
